FAERS Safety Report 22120468 (Version 1)
Quarter: 2023Q1

REPORT INFORMATION
  Report Type: Spontaneous
  Country: US (occurrence: None)
  Receive Date: 20230321
  Receipt Date: 20230321
  Transmission Date: 20230418
  Serious: No
  Sender: FDA-Public Use
  Company Number: US-ROCHE-3212321

PATIENT
  Age: 51 Year
  Sex: Female
  Weight: 70.370 kg

DRUGS (1)
  1. EVRYSDI [Suspect]
     Active Substance: RISDIPLAM
     Indication: Product used for unknown indication
     Dosage: POWDER FOR ORAL SOLUTION?EVR POSO 0.75MG/1ML GLASS BOTTLE 80ML US
     Route: 048

REACTIONS (4)
  - Accidental exposure to product [Unknown]
  - Product leakage [Unknown]
  - Physical product label issue [Unknown]
  - No adverse event [Unknown]
